FAERS Safety Report 15322725 (Version 1)
Quarter: 2018Q3

REPORT INFORMATION
  Report Type: Spontaneous
  Country: FR (occurrence: FR)
  Receive Date: 20180827
  Receipt Date: 20180827
  Transmission Date: 20181010
  Serious: Yes (Hospitalization)
  Sender: FDA-Public Use
  Company Number: FR-MYLANLABS-2018M1063739

PATIENT
  Age: 55 Year
  Sex: Female

DRUGS (4)
  1. AVASTIN [Suspect]
     Active Substance: BEVACIZUMAB
     Indication: LUNG ADENOCARCINOMA
     Dosage: 7.5 MG/KG, Q3W
     Route: 042
     Dates: start: 20161114, end: 20170721
  2. CISPLATIN MYLAN [Suspect]
     Active Substance: CISPLATIN
     Indication: LUNG ADENOCARCINOMA
     Dosage: 75 MG/M2, Q3W
     Route: 042
     Dates: start: 20161114, end: 20170118
  3. ALIMTA [Suspect]
     Active Substance: PEMETREXED DISODIUM
     Indication: LUNG ADENOCARCINOMA
     Dosage: 500 MG/M2, Q3W
     Route: 042
     Dates: start: 20161114, end: 20170630
  4. OPDIVO [Suspect]
     Active Substance: NIVOLUMAB
     Indication: LUNG ADENOCARCINOMA
     Dosage: UNK
     Route: 042

REACTIONS (1)
  - Tubulointerstitial nephritis [Not Recovered/Not Resolved]

NARRATIVE: CASE EVENT DATE: 20171201
